FAERS Safety Report 17949841 (Version 1)
Quarter: 2020Q2

REPORT INFORMATION
  Report Type: Report from Study
  Country: MY (occurrence: MY)
  Receive Date: 20200626
  Receipt Date: 20200626
  Transmission Date: 20200714
  Serious: Yes (Death)
  Sender: FDA-Public Use
  Company Number: MY-ASTRAZENECA-2020SE81621

PATIENT
  Sex: Female

DRUGS (1)
  1. LYNPARZA [Suspect]
     Active Substance: OLAPARIB
     Dosage: 150.0MG UNKNOWN
     Route: 048
     Dates: start: 20200613, end: 20200618

REACTIONS (1)
  - Death [Fatal]

NARRATIVE: CASE EVENT DATE: 20200618
